FAERS Safety Report 10008763 (Version 2)
Quarter: 2014Q1

REPORT INFORMATION
  Report Type: Spontaneous
  Country: US (occurrence: US)
  Receive Date: 20140312
  Receipt Date: 20140312
  Transmission Date: 20141002
  Serious: No
  Sender: FDA-Public Use
  Company Number: US-INCYTE CORPORATION-2012IN000337

PATIENT
  Age: 86 Year
  Sex: Male

DRUGS (7)
  1. JAKAFI [Suspect]
     Indication: MYELOFIBROSIS
     Dosage: 5 MG, BID
     Route: 048
     Dates: start: 20111209, end: 201204
  2. JAKAFI [Suspect]
     Dosage: 5 MG (3 TABS QAM + 2 TABS QPM)
     Route: 048
     Dates: start: 201204, end: 2012
  3. JAKAFI [Suspect]
     Dosage: 5 MG, QD
     Route: 048
     Dates: start: 2012
  4. SYNTHROID [Concomitant]
  5. RANITIDINE [Concomitant]
  6. FLOMAX [Concomitant]
  7. AMBIEN [Concomitant]

REACTIONS (3)
  - Abdominal pain [Not Recovered/Not Resolved]
  - Epistaxis [Unknown]
  - Inappropriate schedule of drug administration [Unknown]
